FAERS Safety Report 9350706 (Version 1)
Quarter: 2013Q2

REPORT INFORMATION
  Report Type: Spontaneous
  Country: VE (occurrence: VE)
  Receive Date: 20130617
  Receipt Date: 20130617
  Transmission Date: 20140414
  Serious: Yes (Other)
  Sender: FDA-Public Use
  Company Number: PHHY2013VE060524

PATIENT
  Age: 79 Year
  Sex: Female

DRUGS (6)
  1. DIOVAN [Suspect]
     Indication: HYPERTENSION
     Dosage: 160 MG, DAILY
     Route: 048
     Dates: start: 2009
  2. LIPITOR [Concomitant]
     Dosage: 80 MG, DAILY
     Route: 048
     Dates: start: 2009
  3. CLOPIDOGREL [Concomitant]
     Dosage: 75 MG, DAILY
     Route: 048
     Dates: start: 2009
  4. ELANTAN [Concomitant]
     Indication: HYPERTENSION
     Dosage: 10 MG, DAILY
     Route: 048
     Dates: start: 2009
  5. CARVEDILOL [Concomitant]
     Indication: HYPERTENSION
     Dosage: 12.5 MG, DAILY
     Route: 048
     Dates: start: 2009
  6. ASPIRIN [Concomitant]
     Dosage: 81 MG, DAILY
     Route: 048
     Dates: start: 2009

REACTIONS (2)
  - Breast cancer [Recovered/Resolved]
  - Type 2 diabetes mellitus [Recovered/Resolved]
